FAERS Safety Report 5068625-0 (Version None)
Quarter: 2006Q3

REPORT INFORMATION
  Report Type: 
  Country: None (occurrence: None)
  Receive Date: 20060802
  Receipt Date: 20060112
  Transmission Date: 20061208
  Serious: No
  Sender: FDA-Public Use
  Company Number: US-BRISTOL-MYERS SQUIBB COMPANY-13245345

PATIENT
  Age: 65 Year
  Sex: Male
  Weight: 113 kg

DRUGS (7)
  1. COUMADIN [Suspect]
     Indication: THROMBOSIS
     Dosage: 4 MG FOUR DAYS PER WEEK ALTERNATING WITH 6 MILLIGRAMS THREE DAYS A WEEK
  2. DEPAKOTE ER [Concomitant]
  3. CARDENE [Concomitant]
  4. NORVASC [Concomitant]
  5. ALTACE [Concomitant]
  6. IMDUR [Concomitant]
  7. ASPIRIN [Concomitant]

REACTIONS (1)
  - INTERNATIONAL NORMALISED RATIO FLUCTUATION [None]
